FAERS Safety Report 7207613-2 (Version None)
Quarter: 2011Q1

REPORT INFORMATION
  Report Type: 
  Country: None (occurrence: None)
  Receive Date: 20110103
  Receipt Date: 20101223
  Transmission Date: 20110831
  Serious: Yes (Other)
  Sender: FDA-Public Use
  Company Number: BR-ASTRAZENECA-2010SE60656

PATIENT
  Age: 59 Year
  Sex: Female
  Weight: 95 kg

DRUGS (5)
  1. SPLENDIL [Suspect]
     Indication: HYPERTENSION
     Route: 048
     Dates: start: 20050101, end: 20101220
  2. ATACAND [Suspect]
     Indication: HYPERTENSION
     Route: 048
     Dates: start: 20050101
  3. SELOZOK [Suspect]
     Indication: ARRHYTHMIA
     Route: 048
     Dates: start: 19950101
  4. SELOZOK [Suspect]
     Indication: HYPERTENSION
     Route: 048
     Dates: start: 19950101
  5. TINADERM [Concomitant]
     Dates: start: 19950101

REACTIONS (8)
  - WEIGHT INCREASED [None]
  - BLOOD CHOLESTEROL INCREASED [None]
  - INSOMNIA [None]
  - BLOOD GLUCOSE INCREASED [None]
  - BLOOD PRESSURE INADEQUATELY CONTROLLED [None]
  - SWELLING [None]
  - DRUG DOSE OMISSION [None]
  - PANIC DISORDER [None]
